FAERS Safety Report 10052102 (Version 2)
Quarter: 2014Q2

REPORT INFORMATION
  Report Type: Report from Study
  Country: DE (occurrence: DE)
  Receive Date: 20140402
  Receipt Date: 20140402
  Transmission Date: 20141212
  Serious: Yes (Hospitalization)
  Sender: FDA-Public Use
  Company Number: DE-ROCHE-1091155

PATIENT
  Age: 70 Year
  Sex: Female
  Weight: 56 kg

DRUGS (18)
  1. BEVACIZUMAB [Suspect]
     Indication: BREAST CANCER METASTATIC
     Dosage: LAST DOSE PRIOR TO STUDY : 11/JUL/2012
     Route: 042
     Dates: start: 20120522
  2. BEVACIZUMAB [Suspect]
     Route: 042
     Dates: start: 20120522, end: 20120522
  3. BEVACIZUMAB [Suspect]
     Dosage: START DATE: 26/SEP/2012?STOP DATE: 26/SEP/2012
     Route: 042
  4. PACLITAXEL [Concomitant]
     Indication: BREAST CANCER METASTATIC
     Route: 042
     Dates: start: 20120522
  5. PACLITAXEL [Concomitant]
     Route: 042
     Dates: start: 20120529
  6. PACLITAXEL [Concomitant]
     Route: 042
     Dates: start: 20120605
  7. PACLITAXEL [Concomitant]
     Route: 042
     Dates: start: 20120627
  8. PACLITAXEL [Concomitant]
     Route: 042
     Dates: start: 20120704
  9. PACLITAXEL [Concomitant]
     Route: 042
     Dates: start: 20120711
  10. PACLITAXEL [Concomitant]
     Route: 042
     Dates: start: 20120725
  11. PACLITAXEL [Concomitant]
     Route: 042
     Dates: start: 20120801
  12. PACLITAXEL [Concomitant]
     Dosage: ALSO ADMINISTERED  90 MG/M2 OF INTERAVENOUS PACLITACEL ON: 29/AUG/2012, 05/SEP/2012,12/SEP/2012, 12/
     Route: 042
     Dates: start: 20120808
  13. RAMIPRIL [Concomitant]
     Indication: HYPERTENSION
     Dosage: DAILY
     Route: 048
  14. HYDROCHLOROTHIAZIDE [Concomitant]
     Indication: HYPERTENSION
     Dosage: DAILY
     Route: 048
  15. DEXAMETHASON [Concomitant]
     Indication: PREMEDICATION
     Route: 065
     Dates: start: 20120522
  16. ZOMETA [Concomitant]
     Indication: METASTASES TO BONE
     Route: 042
     Dates: start: 20120822, end: 20120919
  17. CLONIDIN (GERMANY) [Concomitant]
     Indication: HYPERTENSIVE CRISIS
     Dosage: DAILY
     Route: 065
  18. AMLODIPIN [Concomitant]
     Dosage: DAILY
     Route: 065

REACTIONS (1)
  - Anaemia [Recovered/Resolved]
